FAERS Safety Report 17731332 (Version 6)
Quarter: 2021Q4

REPORT INFORMATION
  Report Type: Spontaneous
  Country: None (occurrence: US)
  Receive Date: 20200430
  Receipt Date: 20211123
  Transmission Date: 20220303
  Serious: No
  Sender: FDA-Public Use
  Company Number: US-AKCEA THERAPEUTICS-2020IS001120

PATIENT
  Age: 70 Year
  Sex: Male
  Weight: 74.591 kg

DRUGS (2)
  1. TEGSEDI [Suspect]
     Active Substance: INOTERSEN SODIUM
     Indication: Hereditary neuropathic amyloidosis
     Route: 058
     Dates: start: 20190805
  2. DEVICE [Suspect]
     Active Substance: DEVICE

REACTIONS (24)
  - Aspartate aminotransferase abnormal [Unknown]
  - Alanine aminotransferase abnormal [Unknown]
  - Injection site pain [Not Recovered/Not Resolved]
  - Nausea [Unknown]
  - Chills [Not Recovered/Not Resolved]
  - Headache [Unknown]
  - Pyrexia [Unknown]
  - Blood creatinine increased [Not Recovered/Not Resolved]
  - Glomerular filtration rate decreased [Not Recovered/Not Resolved]
  - Protein urine present [Unknown]
  - Urine abnormality [Unknown]
  - Urinary sediment present [Unknown]
  - Influenza like illness [Unknown]
  - Bacterial test positive [Not Recovered/Not Resolved]
  - Crystal urine present [Unknown]
  - Vomiting [Unknown]
  - Urine protein/creatinine ratio increased [Unknown]
  - Urinary occult blood positive [Unknown]
  - Urine leukocyte esterase positive [Unknown]
  - Pyuria [Unknown]
  - Urinary casts [Not Recovered/Not Resolved]
  - Laboratory test interference [Unknown]
  - Drug hypersensitivity [Unknown]
  - Injection site reaction [Unknown]

NARRATIVE: CASE EVENT DATE: 20200310
